FAERS Safety Report 8846988 (Version 3)
Quarter: 2013Q3

REPORT INFORMATION
  Report Type: Spontaneous
  Country: US (occurrence: US)
  Receive Date: 20121018
  Receipt Date: 20130823
  Transmission Date: 20140515
  Serious: Yes (Disabling, Other)
  Sender: FDA-Public Use
  Company Number: US-BRISTOL-MYERS SQUIBB COMPANY-17029505

PATIENT
  Age: 59 Year
  Sex: Female

DRUGS (6)
  1. SPRYCEL [Suspect]
     Indication: METASTATIC NEOPLASM
     Route: 048
     Dates: start: 20121004, end: 20121005
  2. SODIUM PHENYLBUTYRATE [Concomitant]
  3. XELODA [Concomitant]
  4. TARCEVA [Concomitant]
  5. VOTRIENT [Concomitant]
  6. EVEROLIMUS [Concomitant]

REACTIONS (1)
  - Adverse drug reaction [Recovering/Resolving]
